FAERS Safety Report 7271902-6 (Version None)
Quarter: 2011Q1

REPORT INFORMATION
  Report Type: 
  Country: None (occurrence: None)
  Receive Date: 20110131
  Receipt Date: 20110131
  Transmission Date: 20110831
  Serious: Yes (Life-Threatening, Hospitalization)
  Sender: FDA-Public Use
  Company Number: None

PATIENT
  Age: 38 Year
  Sex: Female

DRUGS (1)
  1. METHIMAZOLE [Suspect]
     Indication: BASEDOW'S DISEASE
     Dosage: 20 MG BID PO
     Route: 048
     Dates: start: 20110104, end: 20110121

REACTIONS (2)
  - AGRANULOCYTOSIS [None]
  - INFLUENZA LIKE ILLNESS [None]
